FAERS Safety Report 15599616 (Version 1)
Quarter: 2018Q4

REPORT INFORMATION
  Report Type: Spontaneous
  Country: BR (occurrence: BR)
  Receive Date: 20181108
  Receipt Date: 20181108
  Transmission Date: 20190205
  Serious: Yes (Other)
  Sender: FDA-Public Use
  Company Number: BR-PFIZER INC-2018451990

PATIENT
  Sex: Female

DRUGS (2)
  1. DAFORIN [Concomitant]
     Active Substance: FLUOXETINE HYDROCHLORIDE
     Indication: DEPRESSION
     Dosage: 1 TABLET AFTER THE BREAKFAST
  2. LORAX [Suspect]
     Active Substance: LORAZEPAM
     Dosage: 2 MG, UNK
     Dates: start: 2013

REACTIONS (2)
  - Lower limb fracture [Unknown]
  - Fall [Unknown]
